FAERS Safety Report 8394774 (Version 6)
Quarter: 2012Q4

REPORT INFORMATION
  Report Type: 
  Country: US (occurrence: US)
  Receive Date: 20120207
  Receipt Date: 20121102
  Transmission Date: 20130627
  Serious: Yes (Hospitalization, Other)
  Sender: FDA-Public Use
  Company Number: US-009507513-1202USA00861

PATIENT

DRUGS (3)
  1. FOSAMAX [Suspect]
     Indication: OSTEOPENIA
     Dosage: 70 mg, qw
     Route: 048
     Dates: start: 2000, end: 200608
  2. FOSAMAX [Suspect]
     Indication: OSTEOPOROSIS
  3. VITAMIN D (UNSPECIFIED) [Concomitant]
     Indication: OSTEOPENIA
     Dosage: UNK
     Dates: start: 2000

REACTIONS (29)
  - Femur fracture [Unknown]
  - Upper limb fracture [Unknown]
  - Osteonecrosis [Unknown]
  - Uterine dilation and curettage [Unknown]
  - Femoral neck fracture [Unknown]
  - Hip fracture [Unknown]
  - Humerus fracture [Recovering/Resolving]
  - Cholecystectomy [Unknown]
  - Tooth extraction [Unknown]
  - Oral surgery [Unknown]
  - Adverse event [Unknown]
  - Limb asymmetry [Unknown]
  - Depression [Unknown]
  - Spinal column stenosis [Unknown]
  - Intervertebral disc protrusion [Unknown]
  - Neuritis [Unknown]
  - Ankle operation [Unknown]
  - Cough [Unknown]
  - Osteoarthritis [Unknown]
  - Fall [Unknown]
  - Open reduction of fracture [Unknown]
  - Bone metabolism disorder [Unknown]
  - Hyperhidrosis [Unknown]
  - Bone pain [Unknown]
  - Hot flush [Unknown]
  - Lactose intolerance [Unknown]
  - Arthralgia [Unknown]
  - Spinal osteoarthritis [Unknown]
  - Weight increased [Unknown]
